FAERS Safety Report 24669099 (Version 2)
Quarter: 2024Q4

REPORT INFORMATION
  Report Type: Spontaneous
  Country: AT (occurrence: AT)
  Receive Date: 20241127
  Receipt Date: 20241231
  Transmission Date: 20250115
  Serious: Yes (Hospitalization)
  Sender: NOVARTIS
  Company Number: AT-002147023-NVSC2024AT226592

PATIENT
  Sex: Female

DRUGS (2)
  1. ZOLGENSMA [Suspect]
     Active Substance: ONASEMNOGENE ABEPARVOVEC-XIOI
     Indication: Spinal muscular atrophy
     Dosage: UNK, ONCE/SINGLE (2 X 10^13  VEKTORGE NOMES/ ML)
     Route: 042
  2. RISDIPLAM [Concomitant]
     Active Substance: RISDIPLAM
     Indication: Product used for unknown indication
     Dosage: UNK
     Route: 065

REACTIONS (8)
  - Viral infection [Unknown]
  - Respiratory tract infection [Unknown]
  - Respiration abnormal [Unknown]
  - Computerised tomogram thorax abnormal [Unknown]
  - Atelectasis [Unknown]
  - Hyperventilation [Recovering/Resolving]
  - Dysphagia [Recovering/Resolving]
  - Muscular weakness [Unknown]

NARRATIVE: CASE EVENT DATE: 20220601
